FAERS Safety Report 9324847 (Version 1)
Quarter: 2013Q2

REPORT INFORMATION
  Report Type: Report from Study
  Country: CL (occurrence: CL)
  Receive Date: 20130603
  Receipt Date: 20130603
  Transmission Date: 20140414
  Serious: Yes (Hospitalization, Other)
  Sender: FDA-Public Use
  Company Number: PHHY2013CL055342

PATIENT
  Age: 83 Year
  Sex: Female

DRUGS (4)
  1. ACLASTA [Suspect]
     Indication: OSTEOPOROSIS
     Dosage: UNK ONCE A YEAR
     Route: 042
     Dates: start: 201304
  2. NEOSINTROM [Suspect]
     Indication: ANTICOAGULANT THERAPY
     Dosage: UNK THREE YEAR AGO
     Route: 048
  3. TRITTICO [Concomitant]
     Indication: SLEEP DISORDER
     Dosage: HALF TABLET
     Route: 048
  4. NEURYL [Concomitant]
     Indication: SLEEP DISORDER
     Dosage: HALF TABLET A DAY
     Route: 048

REACTIONS (9)
  - Chronic sinusitis [Recovered/Resolved]
  - Headache [Recovering/Resolving]
  - Temporal arteritis [Not Recovered/Not Resolved]
  - Fungal infection [Recovered/Resolved]
  - Affective disorder [Not Recovered/Not Resolved]
  - Nervousness [Not Recovered/Not Resolved]
  - Vein disorder [Not Recovered/Not Resolved]
  - Chills [Not Recovered/Not Resolved]
  - Arthralgia [Not Recovered/Not Resolved]
